FAERS Safety Report 21666566 (Version 1)
Quarter: 2022Q4

REPORT INFORMATION
  Report Type: Report from Study
  Country: US (occurrence: US)
  Receive Date: 20221201
  Receipt Date: 20221201
  Transmission Date: 20230112
  Serious: No
  Sender: FDA-Public Use
  Company Number: US-ABBVIE-4215399

PATIENT
  Age: 67 Year
  Sex: Female

DRUGS (1)
  1. VENCLEXTA [Suspect]
     Active Substance: VENETOCLAX
     Indication: Chronic lymphocytic leukaemia
     Route: 048
     Dates: start: 20221108

REACTIONS (6)
  - Malaise [Unknown]
  - Fatigue [Unknown]
  - Sleep disorder [Unknown]
  - Nasopharyngitis [Unknown]
  - Abdominal distension [Unknown]
  - Bone pain [Unknown]

NARRATIVE: CASE EVENT DATE: 20221101
